FAERS Safety Report 24534275 (Version 1)
Quarter: 2024Q4

REPORT INFORMATION
  Report Type: Report from Study
  Country: BY (occurrence: BY)
  Receive Date: 20241022
  Receipt Date: 20241022
  Transmission Date: 20250114
  Serious: Yes (Hospitalization, Other)
  Sender: MYLAN
  Company Number: BY-MYLANLABS-2024M1095084

PATIENT
  Age: 50 Year
  Sex: Male
  Weight: 65 kg

DRUGS (11)
  1. PRETOMANID [Suspect]
     Active Substance: PRETOMANID
     Indication: Tuberculosis
     Dosage: 200 MILLIGRAM, QD (DAILY)
     Route: 048
     Dates: start: 20240312, end: 20240607
  2. BEDAQUILINE [Suspect]
     Active Substance: BEDAQUILINE
     Indication: Tuberculosis
     Dosage: 400 MILLIGRAM, QD (400 MG OD PO FOR 2 WEEKS, THEN 200 MG TIW PO)
     Route: 048
     Dates: start: 20240312
  3. BEDAQUILINE [Suspect]
     Active Substance: BEDAQUILINE
     Dosage: 200 MILLIGRAM, 3XW (400 MG OD PO FOR 2 WEEKS, THEN 200 MG TIW PO)
     Route: 048
     Dates: end: 20240607
  4. LINEZOLID [Suspect]
     Active Substance: LINEZOLID
     Indication: Tuberculosis
     Dosage: 600 MILLIGRAM (112 DOSES)
     Route: 065
     Dates: start: 20240312
  5. LINEZOLID [Suspect]
     Active Substance: LINEZOLID
     Dosage: 300 MILLIGRAM
     Route: 065
     Dates: end: 20240607
  6. CLOFAZIMINE [Suspect]
     Active Substance: CLOFAZIMINE
     Indication: Tuberculosis
     Dosage: 100 MILLIGRAM, QD (DAILY)
     Route: 048
     Dates: start: 20240312, end: 20240607
  7. PYRIDOXINE [Concomitant]
     Active Substance: PYRIDOXINE
     Indication: Prophylaxis
     Dosage: 100 MILLIGRAM
     Route: 065
     Dates: start: 20240312, end: 20240618
  8. FOLIC ACID [Concomitant]
     Active Substance: FOLIC ACID
     Indication: Prophylaxis
     Dosage: 2 MILLIGRAM, TID
     Route: 065
     Dates: start: 20240512, end: 20240818
  9. COTRIMOXAZOLE [Concomitant]
     Active Substance: SULFAMETHOXAZOLE\TRIMETHOPRIM
     Indication: HIV infection
     Dosage: 960 MILLIGRAM, QD (960 MG ORALLY 1 TIME PER DAY)
     Route: 048
     Dates: start: 20240313, end: 20240818
  10. LAMIVUDINE [Concomitant]
     Active Substance: LAMIVUDINE
     Indication: HIV infection
     Dosage: 150 MILLIGRAM, BID (150 MG, TWICE DAILY)
     Route: 048
     Dates: start: 20240321, end: 20240818
  11. DOLUTEGRAVIR [Concomitant]
     Active Substance: DOLUTEGRAVIR
     Indication: HIV infection
     Dosage: 50 MILLIGRAM, QD (50 MG ORALLY 1 TIME PER DAY)
     Route: 048
     Dates: start: 20240321, end: 20240818

REACTIONS (2)
  - Intestinal obstruction [Recovered/Resolved]
  - Hyperbilirubinaemia [Recovered/Resolved]

NARRATIVE: CASE EVENT DATE: 20240606
